FAERS Safety Report 12727904 (Version 3)
Quarter: 2017Q1

REPORT INFORMATION
  Report Type: Spontaneous
  Country: JP (occurrence: JP)
  Receive Date: 20160909
  Receipt Date: 20170217
  Transmission Date: 20170428
  Serious: Yes (Life-Threatening, Other)
  Sender: FDA-Public Use
  Company Number: JP-ELI_LILLY_AND_COMPANY-JP201609001765

PATIENT
  Age: 83 Year
  Sex: Male
  Weight: 50 kg

DRUGS (10)
  1. POLARAMINE [Concomitant]
     Active Substance: DEXCHLORPHENIRAMINE MALEATE
     Indication: PRODUCT USED FOR UNKNOWN INDICATION
     Route: 065
     Dates: start: 20160823
  2. AZILSARTAN [Concomitant]
     Active Substance: AZILSARTAN KAMEDOXOMIL
     Indication: HYPERTENSION
     Dosage: 10 MG, QD
     Route: 048
  3. ERBITUX [Suspect]
     Active Substance: CETUXIMAB
     Dosage: 374 MG, WEEKLY (1/W)
     Route: 042
     Dates: start: 20160823
  4. DEXART [Concomitant]
     Active Substance: DEXAMETHASONE SODIUM PHOSPHATE
     Indication: PRODUCT USED FOR UNKNOWN INDICATION
     Dosage: 6.6 MG, WEEKLY (1/W)
     Route: 065
     Dates: start: 20160823
  5. ERBITUX [Suspect]
     Active Substance: CETUXIMAB
     Indication: GINGIVAL CANCER
     Dosage: 250 MG/M2, WEEKLY (1/W)
     Route: 042
     Dates: start: 20160524
  6. ETIZOLAM [Concomitant]
     Active Substance: ETIZOLAM
     Indication: INSOMNIA
     Dosage: .5 MG, QD
     Route: 048
     Dates: start: 20160515
  7. CALONAL [Concomitant]
     Active Substance: ACETAMINOPHEN
     Indication: CANCER PAIN
     Dosage: 500 MG, TID
     Route: 048
     Dates: start: 20160828
  8. PACLITAXEL. [Suspect]
     Active Substance: PACLITAXEL
     Indication: GINGIVAL CANCER
     Dosage: 80 MG/M2, UNK
     Route: 065
     Dates: start: 20160823
  9. GRANISETRON [Concomitant]
     Active Substance: GRANISETRON
     Indication: PRODUCT USED FOR UNKNOWN INDICATION
     Route: 065
     Dates: start: 20160823
  10. FERROUS SODIUM CITRATE [Concomitant]
     Active Substance: SODIUM FERROUS CITRATE
     Indication: IRON DEFICIENCY ANAEMIA
     Dosage: 50 MG, BID
     Route: 048
     Dates: start: 20160812

REACTIONS (6)
  - Bone marrow failure [Recovering/Resolving]
  - Off label use [Unknown]
  - Thrombosis [Unknown]
  - Intestinal ischaemia [Unknown]
  - Constipation [Recovering/Resolving]
  - Portal venous gas [Unknown]

NARRATIVE: CASE EVENT DATE: 20160830
